FAERS Safety Report 9736531 (Version 1)
Quarter: 2013Q4

REPORT INFORMATION
  Report Type: Spontaneous
  Country: US (occurrence: US)
  Receive Date: 20131206
  Receipt Date: 20131206
  Transmission Date: 20140711
  Serious: No
  Sender: FDA-Public Use
  Company Number: US-BIOGENIDEC-2013BI095349

PATIENT
  Sex: Female

DRUGS (21)
  1. TECFIDERA [Suspect]
     Indication: PRODUCT USED FOR UNKNOWN INDICATION
     Route: 048
  2. FLUCONAZOLE [Concomitant]
     Dates: start: 20130925
  3. LEVOFLOXACIN [Concomitant]
     Dates: start: 20130925
  4. LANSOPRAZOLE [Concomitant]
     Dates: start: 20130919
  5. INOSITOL [Concomitant]
     Dates: start: 20130913
  6. DOXYCYCLINE HYCLATE [Concomitant]
     Dates: start: 20130911
  7. FLORAJEN ACIDOPHILUS [Concomitant]
     Dates: start: 20130905
  8. AMOXICILLIN [Concomitant]
     Dates: start: 20130904
  9. ESTRACE [Concomitant]
     Dates: start: 20130904
  10. FLUCONAZOLE [Concomitant]
     Dates: start: 20130904
  11. FENTANYL [Concomitant]
     Dates: start: 20130830
  12. BACLOFEN [Concomitant]
     Dates: start: 20130829
  13. TRAZODONE [Concomitant]
     Dates: start: 20130829
  14. D-AMPHETAMINE SALT [Concomitant]
     Dates: start: 20130829
  15. SLO-NIACIN [Concomitant]
     Dates: start: 20130828
  16. L-METHYLFOLATE [Concomitant]
     Dates: start: 20130821
  17. FENTANYL [Concomitant]
     Dates: start: 20130804
  18. BUPROPION XL [Concomitant]
     Dates: start: 20130801
  19. PREVIDENT 5000 SENSITIVE [Concomitant]
     Dates: start: 20130621
  20. NIACIN [Concomitant]
     Dates: start: 20120524
  21. AMOXICILLIN [Concomitant]

REACTIONS (1)
  - Gastritis [Not Recovered/Not Resolved]
